FAERS Safety Report 8826432 (Version 1)
Quarter: 2012Q4

REPORT INFORMATION
  Report Type: 
  Country: MX (occurrence: MX)
  Receive Date: 20121005
  Receipt Date: 20121005
  Transmission Date: 20130627
  Serious: Yes (Other)
  Sender: FDA-Public Use
  Company Number: PHHY2012MX085932

PATIENT
  Age: 32 Year
  Sex: Male

DRUGS (2)
  1. GILENYA [Suspect]
     Indication: MULTIPLE SCLEROSIS
     Dosage: 0.5 mg, QD
     Route: 048
     Dates: start: 201209
  2. PHARMATON [Concomitant]
     Indication: MEDICAL DIET

REACTIONS (5)
  - Fall [Unknown]
  - Joint injury [Unknown]
  - Inflammation [Unknown]
  - Skin discolouration [Unknown]
  - Limb injury [Unknown]
